FAERS Safety Report 16426910 (Version 1)
Quarter: 2019Q3

REPORT INFORMATION
  Report Type: Spontaneous
  Country: US (occurrence: US)
  Receive Date: 20190612
  Receipt Date: 20190612
  Transmission Date: 20191004
  Serious: Yes (Hospitalization)
  Sender: FDA-Public Use
  Company Number: None

PATIENT
  Age: 60 Year
  Sex: Male
  Weight: 85.5 kg

DRUGS (1)
  1. OPDIVO [Suspect]
     Active Substance: NIVOLUMAB
     Indication: MALIGNANT MELANOMA
     Dosage: ?          QUANTITY:1 INFUSION;?
     Dates: start: 20190208, end: 20190215

REACTIONS (2)
  - Diarrhoea [None]
  - Type 1 diabetes mellitus [None]

NARRATIVE: CASE EVENT DATE: 20190215
